FAERS Safety Report 18372985 (Version 1)
Quarter: 2020Q4

REPORT INFORMATION
  Report Type: Spontaneous
  Country: GB (occurrence: GB)
  Receive Date: 20201012
  Receipt Date: 20201012
  Transmission Date: 20210114
  Serious: Yes (Other)
  Sender: FDA-Public Use
  Company Number: GB-TEVA-2020-GB-1836587

PATIENT
  Age: 78 Year
  Sex: Male

DRUGS (5)
  1. CIPROFLOXACIN. [Suspect]
     Active Substance: CIPROFLOXACIN
     Route: 042
  2. PARACETAMOL [Concomitant]
     Active Substance: ACETAMINOPHEN
     Dosage: TWO TO BE TAKEN EVERY 4-6 HOURS UP TO FOUR TIMES A DAY.
  3. CODEINE [Concomitant]
     Active Substance: CODEINE
  4. PHOSPHATE SANDOZ EFFERVESCENT [Concomitant]
     Dosage: 3 DAYS TREATMENT, UNIT DOSE: 3 DOSAGE FORMS
  5. LACTULOSE. [Concomitant]
     Active Substance: LACTULOSE
     Indication: CONSTIPATION
     Dosage: 3.1-3.7G/5ML. TWICE A DAY WHILE TAKING CODEINE. UNIT DOSE: 15 ML
     Route: 048

REACTIONS (2)
  - Hypotension [Recovered/Resolved]
  - Atrial fibrillation [Recovered/Resolved]
